FAERS Safety Report 8553110-1 (Version None)
Quarter: 2012Q3

REPORT INFORMATION
  Report Type: 
  Country: None (occurrence: None)
  Receive Date: 20120731
  Receipt Date: 20120720
  Transmission Date: 20120928
  Serious: Yes (Death)
  Sender: FDA-Public Use
  Company Number: PA-SANOFI-AVENTIS-2012SA041071

PATIENT
  Age: 83 Year
  Sex: Female

DRUGS (3)
  1. ZOLPIDEM TARTRATE [Suspect]
     Indication: INSOMNIA
     Dosage: END DATE REPORTED AS 2 MONTHS
     Route: 048
  2. ALPRAZOLAM [Concomitant]
     Indication: ANXIETY
     Dosage: END DATE AS 2 MONTHS
     Route: 048
  3. SERTRALINE HYDROCHLORIDE [Concomitant]
     Indication: MAJOR DEPRESSION
     Route: 048

REACTIONS (2)
  - DEATH [None]
  - DYSPNOEA [None]
